FAERS Safety Report 14032250 (Version 10)
Quarter: 2019Q1

REPORT INFORMATION
  Report Type: Spontaneous
  Country: US (occurrence: US)
  Receive Date: 20171002
  Receipt Date: 20190219
  Transmission Date: 20190417
  Serious: Yes (Hospitalization, Other)
  Sender: FDA-Public Use
  Company Number: US-PFIZER INC-2017393039

PATIENT
  Age: 79 Year
  Sex: Female
  Weight: 59 kg

DRUGS (9)
  1. BENTYL [Concomitant]
     Active Substance: DICYCLOMINE HYDROCHLORIDE
     Dosage: UNK
  2. LISINOPRIL. [Concomitant]
     Active Substance: LISINOPRIL
     Dosage: UNK
  3. AMLODIPINE [Concomitant]
     Active Substance: AMLODIPINE BESYLATE
     Indication: BLOOD PRESSURE MEASUREMENT
     Dosage: 10 MG, 1X/DAY
  4. SUTENT [Suspect]
     Active Substance: SUNITINIB MALATE
     Dosage: 37.5 MG, DAILY
     Dates: end: 20190108
  5. ASPIRIN. [Concomitant]
     Active Substance: ASPIRIN
     Dosage: UNK
  6. OXYCODONE [Concomitant]
     Active Substance: OXYCODONE
     Dosage: UNK
  7. SUTENT [Suspect]
     Active Substance: SUNITINIB MALATE
     Indication: METASTASES TO SPINE
     Dosage: UNK
     Dates: start: 20171018
  8. SUTENT [Suspect]
     Active Substance: SUNITINIB MALATE
     Indication: HEPATIC CANCER
     Dosage: 37.5 MG, 1X/DAY (ONE CAPSULE (37.5MG TOTAL)
     Route: 048
     Dates: start: 20170920, end: 201709
  9. SUTENT [Suspect]
     Active Substance: SUNITINIB MALATE
     Indication: GASTROINTESTINAL STROMAL TUMOUR
     Dosage: 37.5 MG, DAILY
     Dates: start: 20170908

REACTIONS (24)
  - Intestinal obstruction [Recovered/Resolved]
  - Oral discomfort [Unknown]
  - Hyperphagia [Unknown]
  - White blood cell count decreased [Not Recovered/Not Resolved]
  - Oral pain [Unknown]
  - Glossodynia [Unknown]
  - Blood pressure increased [Unknown]
  - Pain in extremity [Unknown]
  - Sciatica [Unknown]
  - Dental discomfort [Unknown]
  - Headache [Unknown]
  - Erythema [Unknown]
  - Insomnia [Unknown]
  - Gastric disorder [Unknown]
  - Dysgeusia [Unknown]
  - Asthenia [Recovering/Resolving]
  - Fatigue [Unknown]
  - Irritability [Unknown]
  - Hyperkeratosis [Unknown]
  - Weight decreased [Unknown]
  - Dry mouth [Unknown]
  - Blood potassium decreased [Unknown]
  - Musculoskeletal pain [Unknown]
  - Eating disorder [Unknown]

NARRATIVE: CASE EVENT DATE: 2019
